FAERS Safety Report 17355702 (Version 3)
Quarter: 2020Q2

REPORT INFORMATION
  Report Type: Spontaneous
  Country: US (occurrence: US)
  Receive Date: 20200131
  Receipt Date: 20200518
  Transmission Date: 20200713
  Serious: No
  Sender: FDA-Public Use
  Company Number: US-SA-2019SA312017

PATIENT
  Age: 50 Year
  Sex: Female

DRUGS (1)
  1. FABRAZYME [Suspect]
     Active Substance: AGALSIDASE BETA
     Indication: FABRY^S DISEASE
     Dosage: 90 MG, QOW
     Route: 041
     Dates: start: 20190812

REACTIONS (3)
  - Vision blurred [Unknown]
  - Malaise [Unknown]
  - Intentional dose omission [Unknown]

NARRATIVE: CASE EVENT DATE: 201912
